FAERS Safety Report 6015578-4 (Version None)
Quarter: 2008Q4

REPORT INFORMATION
  Report Type: 
  Country: None (occurrence: None)
  Receive Date: 20081219
  Receipt Date: 20081219
  Transmission Date: 20090506
  Serious: Yes (Other)
  Sender: FDA-Public Use
  Company Number: None

PATIENT
  Age: 21 Year
  Sex: Female

DRUGS (3)
  1. STRATTERA [Suspect]
     Indication: ATTENTION DEFICIT/HYPERACTIVITY DISORDER
     Dosage: 25 MG DAILY PO
     Route: 048
     Dates: start: 20081111, end: 20081117
  2. PROZAC [Concomitant]
  3. AMBIEN [Concomitant]

REACTIONS (1)
  - BLOOD PRESSURE ORTHOSTATIC [None]
